FAERS Safety Report 5822484-4 (Version None)
Quarter: 2008Q3

REPORT INFORMATION
  Report Type: 
  Country: None (occurrence: None)
  Receive Date: 20080723
  Receipt Date: 20080723
  Transmission Date: 20090109
  Serious: Yes (Hospitalization)
  Sender: FDA-Public Use
  Company Number: None

PATIENT
  Sex: Male
  Weight: 103.4 kg

DRUGS (2)
  1. FLUOROURACIL [Suspect]
     Dosage: 1495 MG
  2. CISPLATIN [Suspect]
     Dosage: 34 MG

REACTIONS (2)
  - DEHYDRATION [None]
  - DIZZINESS [None]
